FAERS Safety Report 10553721 (Version 1)
Quarter: 2014Q4

REPORT INFORMATION
  Report Type: Spontaneous
  Country: US (occurrence: None)
  Receive Date: 20141023
  Receipt Date: 20141023
  Transmission Date: 20150529
  Serious: No
  Sender: FDA-Public Use
  Company Number: AP356-01284-SPO-US

PATIENT
  Age: 70 Year
  Sex: Male
  Weight: 98 kg

DRUGS (15)
  1. VITAMIN D (ERGOCALCIFEROL) [Concomitant]
     Active Substance: ERGOCALCIFEROL
  2. TAMSULOSIN (TAMSULOSIN) [Concomitant]
     Active Substance: TAMSULOSIN
  3. VITAMIN C [Concomitant]
     Active Substance: ASCORBIC ACID
  4. CENTRUM VITAMINS [Concomitant]
  5. CLONAZEPAM (CLONAZEPAM) [Concomitant]
  6. OMEPRAZOLE. [Concomitant]
     Active Substance: OMEPRAZOLE
  7. METFORMIN [Concomitant]
     Active Substance: METFORMIN HYDROCHLORIDE
  8. LISINOPRIL. [Concomitant]
     Active Substance: LISINOPRIL
  9. BELVIQ [Suspect]
     Active Substance: LORCASERIN HYDROCHLORIDE
     Indication: WEIGHT DECREASED
     Dosage: 2 IN 1 D
     Route: 048
     Dates: start: 201312
  10. METOPROLOL [Concomitant]
     Active Substance: METOPROLOL
  11. BABY ASPIRIN (ACETYLSALICYLIC ACID) [Concomitant]
     Active Substance: ASPIRIN
  12. CLOPIDOGREL [Concomitant]
     Active Substance: CLOPIDOGREL BISULFATE
  13. LEVOTHYROXINE (LEVOTHYROXINE) [Concomitant]
     Active Substance: LEVOTHYROXINE
  14. FENOFIBRATE (FENOFIBRATE) [Concomitant]
  15. FINASTERIDE (FINASTERIDE) [Concomitant]
     Active Substance: FINASTERIDE

REACTIONS (1)
  - Weight increased [None]

NARRATIVE: CASE EVENT DATE: 201407
